FAERS Safety Report 8685028 (Version 2)
Quarter: 2013Q4

REPORT INFORMATION
  Report Type: Spontaneous
  Country: US (occurrence: US)
  Receive Date: 20120726
  Receipt Date: 20131101
  Transmission Date: 20140711
  Serious: No
  Sender: FDA-Public Use
  Company Number: US-009507513-1207USA001914

PATIENT
  Sex: Female

DRUGS (1)
  1. CLARITIN [Suspect]
     Indication: SINUS CONGESTION
     Dosage: UNK, ONCE
     Route: 048
     Dates: start: 20120701

REACTIONS (1)
  - Condition aggravated [Unknown]
